FAERS Safety Report 7099648-8 (Version None)
Quarter: 2010Q4

REPORT INFORMATION
  Report Type: 
  Country: None (occurrence: None)
  Receive Date: 20101112
  Receipt Date: 20101104
  Transmission Date: 20110411
  Serious: Yes (Life-Threatening, Other)
  Sender: FDA-Public Use
  Company Number: US-AMGEN-QUU410076

PATIENT

DRUGS (18)
  1. NPLATE [Suspect]
     Indication: IDIOPATHIC THROMBOCYTOPENIC PURPURA
     Dosage: 1 A?G/KG, UNK
     Dates: start: 20081128, end: 20091223
  2. NPLATE [Suspect]
     Dates: start: 20081128, end: 20091223
  3. PREDNISONE [Concomitant]
     Dosage: 25 MG, QD
  4. CORTICOSTEROIDS [Concomitant]
     Indication: IDIOPATHIC THROMBOCYTOPENIC PURPURA
  5. RITUXIMAB [Concomitant]
     Indication: IDIOPATHIC THROMBOCYTOPENIC PURPURA
  6. SOLU-MEDROL [Concomitant]
  7. DANAZOL [Concomitant]
  8. AMBIEN [Concomitant]
     Dosage: 10 MG, PRN
  9. ANZEMET [Concomitant]
     Indication: NAUSEA
     Dosage: 100 MG, PRN
  10. ATIVAN [Concomitant]
     Dosage: 0.5 MG, PRN
  11. COMPAZINE [Concomitant]
     Indication: NAUSEA
     Dosage: 30 MG, UNK
  12. FERROUS SULFATE [Concomitant]
     Dosage: 325 MG, BID
  13. LISINOPRIL [Concomitant]
     Dosage: 10 MG, QD
  14. PRILOSEC [Concomitant]
     Dosage: 40 MG, UNK
  15. PROCARDIA XL [Concomitant]
     Dosage: 30 MG, UNK
  16. TOPAMAX [Concomitant]
     Dosage: 50 MG, UNK
  17. VICODIN [Concomitant]
  18. ZOLPIDEM [Concomitant]
     Dosage: 10 MG, UNK

REACTIONS (6)
  - DEEP VEIN THROMBOSIS [None]
  - PLATELET COUNT DECREASED [None]
  - SCLERODERMA [None]
  - THERAPEUTIC RESPONSE DECREASED [None]
  - VAGINAL HAEMORRHAGE [None]
  - VIITH NERVE PARALYSIS [None]
